FAERS Safety Report 10658622 (Version 1)
Quarter: 2014Q4

REPORT INFORMATION
  Report Type: Spontaneous
  Country: US (occurrence: None)
  Receive Date: 20141205
  Receipt Date: 20141205
  Transmission Date: 20150529
  Serious: Yes (Hospitalization, Other)
  Sender: FDA-Public Use
  Company Number: 163-POMAL-14085016

PATIENT
  Age: 62 Year
  Sex: Female

DRUGS (1)
  1. POMALYST [Suspect]
     Active Substance: POMALIDOMIDE
     Indication: MYELOFIBROSIS
     Dosage: 28 IN 28 D
     Route: 048
     Dates: start: 201309

REACTIONS (4)
  - Lung infection [None]
  - Blood uric acid increased [None]
  - Renal disorder [None]
  - Anaemia [None]

NARRATIVE: CASE EVENT DATE: 2014
